FAERS Safety Report 5199574-5 (Version None)
Quarter: 2007Q1

REPORT INFORMATION
  Report Type: 
  Country: None (occurrence: None)
  Receive Date: 20070103
  Receipt Date: 20070103
  Transmission Date: 20070707
  Serious: Yes (Other)
  Sender: FDA-Public Use
  Company Number: None

PATIENT
  Age: 22 Year
  Sex: Female
  Weight: 53.5244 kg

DRUGS (1)
  1. NUVARING [Suspect]
     Indication: CONTRACEPTION
     Dosage: 1 RING EVERY 3 WEEKS VAG
     Route: 067

REACTIONS (7)
  - ANGER [None]
  - ASTHENIA [None]
  - DEPRESSION [None]
  - FATIGUE [None]
  - METRORRHAGIA [None]
  - MOOD ALTERED [None]
  - SOMNOLENCE [None]
